FAERS Safety Report 16665304 (Version 1)
Quarter: 2019Q3

REPORT INFORMATION
  Report Type: Spontaneous
  Country: FR (occurrence: FR)
  Receive Date: 20190803
  Receipt Date: 20190803
  Transmission Date: 20191004
  Serious: Yes (Other)
  Sender: FDA-Public Use
  Company Number: FR-MICRO LABS LIMITED-ML2019-01812

PATIENT
  Age: 15 Year
  Sex: Female

DRUGS (1)
  1. LEVOCETIRIZINE [Suspect]
     Active Substance: LEVOCETIRIZINE
     Dosage: LEVOCETIRIZINE 0.67 MG/KG
     Route: 048

REACTIONS (4)
  - Hallucination [Unknown]
  - Intentional overdose [Unknown]
  - Blindness [Unknown]
  - Delirium [Unknown]
